FAERS Safety Report 6055477-5 (Version None)
Quarter: 2009Q1

REPORT INFORMATION
  Report Type: 
  Country: None (occurrence: None)
  Receive Date: 20090128
  Receipt Date: 20090116
  Transmission Date: 20090719
  Serious: Yes (Other)
  Sender: FDA-Public Use
  Company Number: US-ROCHE-562582

PATIENT
  Sex: Male

DRUGS (2)
  1. PEG-INTERFERON A-2A (RO 25-8310) [Suspect]
     Indication: HEPATITIS C
     Dosage: FORM: PRE-FILLED SYRINGE, THE PATIENT MISSED DOSE OF 14 JANUARY 2009.
     Route: 065
     Dates: start: 20080611
  2. RIBAVIRIN [Suspect]
     Indication: HEPATITIS C
     Dosage: FORM: PILLS, PILLS OUT FOR ONE WEEK.
     Route: 065
     Dates: start: 20080611

REACTIONS (10)
  - CHILLS [None]
  - COLD SWEAT [None]
  - DELUSION [None]
  - DIZZINESS [None]
  - DRUG DOSE OMISSION [None]
  - INJECTION SITE HAEMATOMA [None]
  - INSOMNIA [None]
  - PYREXIA [None]
  - SKIN NODULE [None]
  - VOMITING [None]
